FAERS Safety Report 10516716 (Version 1)
Quarter: 2014Q4

REPORT INFORMATION
  Report Type: Spontaneous
  Country: US (occurrence: None)
  Receive Date: 20141003
  Receipt Date: 20141003
  Transmission Date: 20150528
  Serious: Yes (Other)
  Sender: FDA-Public Use
  Company Number: 1355957

PATIENT
  Age: 48 Year
  Sex: Male
  Weight: 73 kg

DRUGS (3)
  1. PEGASYS [Suspect]
     Active Substance: PEGINTERFERON ALFA-2A
     Indication: HEPATITIS C
     Dosage: (180 UG, 1 IN 1 WK), SUBCUTANEOUS
     Route: 058
     Dates: start: 20091001, end: 20100708
  2. IBUPROFEN (IBUPROFEN) [Concomitant]
     Active Substance: IBUPROFEN
  3. RIBAVIRIN (RIBAVIRIN) [Suspect]
     Active Substance: RIBAVIRIN
     Indication: HEPATITIS C
     Dosage: (800 MG, 1 IN 1 D), ORAL
     Route: 048
     Dates: start: 20091101, end: 20100704

REACTIONS (1)
  - Anaemia [None]

NARRATIVE: CASE EVENT DATE: 20091115
